FAERS Safety Report 23550826 (Version 2)
Quarter: 2024Q1

REPORT INFORMATION
  Report Type: Report from Study
  Country: CA (occurrence: CA)
  Receive Date: 20240221
  Receipt Date: 20240312
  Transmission Date: 20240410
  Serious: No
  Sender: FDA-Public Use
  Company Number: CA-ABBVIE-5644639

PATIENT
  Age: 23 Year
  Sex: Female

DRUGS (1)
  1. HUMIRA [Suspect]
     Active Substance: ADALIMUMAB
     Indication: Crohn^s disease
     Route: 058
     Dates: start: 20160921

REACTIONS (8)
  - Diarrhoea [Unknown]
  - Furuncle [Recovering/Resolving]
  - Injection site erythema [Unknown]
  - Faeces discoloured [Unknown]
  - Limb mass [Unknown]
  - Rash [Unknown]
  - Tenderness [Unknown]
  - Mass [Unknown]

NARRATIVE: CASE EVENT DATE: 20230601
